FAERS Safety Report 12197789 (Version 1)
Quarter: 2016Q1

REPORT INFORMATION
  Report Type: Spontaneous
  Country: US (occurrence: None)
  Receive Date: 20160321
  Receipt Date: 20160321
  Transmission Date: 20160526
  Serious: No
  Sender: FDA-Public Use
  Company Number: None

PATIENT
  Age: 43 Year
  Sex: Female
  Weight: 58.51 kg

DRUGS (9)
  1. T4 [Concomitant]
     Active Substance: LEVOTHYROXINE
  2. CURCUMIN EXTRACT [Concomitant]
  3. VIVELLE [Concomitant]
     Active Substance: ESTRADIOL
  4. MVI [Concomitant]
     Active Substance: VITAMINS
  5. ALPHA LIPOIC ACID [Concomitant]
     Active Substance: .ALPHA.-LIPOIC ACID
  6. MAG GLYCINATE [Concomitant]
  7. GABAPENTIN. [Suspect]
     Active Substance: GABAPENTIN
     Indication: NEUROPATHY PERIPHERAL
     Dosage: 1 PILL ONCE DAILY TAKEN BY MOUTH
     Route: 048
     Dates: start: 20160311, end: 20160314
  8. FISH OIL [Concomitant]
     Active Substance: FISH OIL
  9. T3 [Concomitant]
     Active Substance: LIOTHYRONINE SODIUM

REACTIONS (1)
  - Rash [None]

NARRATIVE: CASE EVENT DATE: 20160312
